FAERS Safety Report 25766517 (Version 1)
Quarter: 2025Q3

REPORT INFORMATION
  Report Type: Spontaneous
  Country: EU (occurrence: EU)
  Receive Date: 20250905
  Receipt Date: 20250905
  Transmission Date: 20251020
  Serious: Yes (Hospitalization, Other)
  Sender: UCB
  Company Number: None

PATIENT
  Age: 55 Year
  Sex: Male

DRUGS (19)
  1. NEUPRO [Suspect]
     Active Substance: ROTIGOTINE
     Indication: Product used for unknown indication
  2. CARBIDOPA\LEVODOPA [Suspect]
     Active Substance: CARBIDOPA\LEVODOPA
     Indication: Parkinson^s disease
     Dates: start: 20171205
  3. CARBIDOPA\LEVODOPA [Suspect]
     Active Substance: CARBIDOPA\LEVODOPA
     Indication: Mobility decreased
     Dates: start: 20250703
  4. CLOZAPINE [Suspect]
     Active Substance: CLOZAPINE
     Indication: Product used for unknown indication
  5. FENOFIBRAT AL [Concomitant]
     Indication: Product used for unknown indication
     Route: 048
  6. VITAMIN D3 [Concomitant]
     Active Substance: CHOLECALCIFEROL
     Indication: Product used for unknown indication
  7. VITAMIN B COMPLEX [Concomitant]
     Active Substance: CYANOCOBALAMIN\DEXPANTHENOL\NIACINAMIDE\PYRIDOXINE HYDROCHLORIDE\RIBOFLAVIN 5^-PHOSPHATE SODIUM\THIA
     Indication: Product used for unknown indication
     Dosage: VITAMIN B COMPLEX, CAPS. (EDER) [100 MG CHOLINE CITRATE, (62.3 MG CHOLINIUM CATION), 50 MG NICOTINAM
  8. IBUPROFEN [Concomitant]
     Active Substance: IBUPROFEN
     Indication: Pain in extremity
     Route: 048
     Dates: start: 20250703
  9. IBUPROFEN [Concomitant]
     Active Substance: IBUPROFEN
     Indication: Arthralgia
  10. IMODIUM [Concomitant]
     Active Substance: LOPERAMIDE HYDROCHLORIDE
     Indication: Diarrhoea
     Dates: start: 20250703
  11. LAXANS-RATIOPHARM PICO [Concomitant]
     Indication: Constipation
     Dates: start: 20250703
  12. CHOLECALCIFEROL [Concomitant]
     Active Substance: CHOLECALCIFEROL
     Indication: Product used for unknown indication
  13. POLYETHYLENE GLYCOL 3350 [Concomitant]
     Active Substance: POLYETHYLENE GLYCOL 3350
     Indication: Product used for unknown indication
     Dates: start: 20250703
  14. POTASSIUM CITRATE [Concomitant]
     Active Substance: POTASSIUM CITRATE
     Indication: Product used for unknown indication
  15. BENSERAZIDE HYDROCHLORIDE\LEVODOPA [Concomitant]
     Active Substance: BENSERAZIDE HYDROCHLORIDE\LEVODOPA
     Indication: Movement disorder
  16. SERTRALINE HYDROCHLORIDE [Concomitant]
     Active Substance: SERTRALINE HYDROCHLORIDE
     Indication: Product used for unknown indication
     Dosage: FITAB (STADAPHARM) 155,95 MG SERTRALIN HYDROCHLORID, (50 MG SERTRALIN)]
  17. Tavor [Concomitant]
     Indication: Product used for unknown indication
  18. ACETAMINOPHEN [Concomitant]
     Active Substance: ACETAMINOPHEN
     Indication: Pyrexia
     Route: 048
     Dates: start: 20250703
  19. TORSEMIDE [Concomitant]
     Active Substance: TORSEMIDE
     Indication: Product used for unknown indication

REACTIONS (20)
  - Hypokinesia [Not Recovered/Not Resolved]
  - Pneumonia [Unknown]
  - Psychotic disorder [Unknown]
  - Aspiration [Unknown]
  - Dysphagia [Unknown]
  - Muscle rigidity [Unknown]
  - Somnolence [Unknown]
  - Constipation [Unknown]
  - Vitamin D deficiency [Unknown]
  - Asthenia [Unknown]
  - Gait disturbance [Unknown]
  - Hyperkinesia [Unknown]
  - Nightmare [Unknown]
  - Tooth infection [Unknown]
  - Bronchitis chronic [Unknown]
  - Obesity [Unknown]
  - Bronchitis bacterial [Unknown]
  - Tachypnoea [Unknown]
  - Muscle spasticity [Unknown]
  - Therapeutic product effect decreased [Unknown]

NARRATIVE: CASE EVENT DATE: 20240101
